FAERS Safety Report 19855166 (Version 1)
Quarter: 2021Q3

REPORT INFORMATION
  Report Type: Spontaneous
  Country: US (occurrence: US)
  Receive Date: 20210918
  Receipt Date: 20210918
  Transmission Date: 20211014
  Serious: Yes (Death)
  Sender: FDA-Public Use
  Company Number: None

PATIENT
  Age: 84 Year
  Sex: Male
  Weight: 76.95 kg

DRUGS (20)
  1. PREDNISONE. [Suspect]
     Active Substance: PREDNISONE
     Indication: PROSTATE CANCER
     Route: 048
     Dates: start: 20200922, end: 20210916
  2. FOLIC ACID 1MG [Concomitant]
     Active Substance: FOLIC ACID
  3. THIAMINE 100MG [Concomitant]
  4. FAMOTIDINE 20MG [Concomitant]
     Active Substance: FAMOTIDINE
  5. OMEPRAZOLE 20MG [Concomitant]
     Active Substance: OMEPRAZOLE
  6. NITROGLYCERIN 0.4MG [Concomitant]
  7. ASPIRIN 81MG [Concomitant]
     Active Substance: ASPIRIN
  8. MIRTAZAPINE 15MG [Concomitant]
     Active Substance: MIRTAZAPINE
  9. HYDROCODONE/ACETAMINOPHEN 5?325MG [Concomitant]
  10. MUPIROCIN 2% [Concomitant]
     Active Substance: MUPIROCIN
  11. MULTIVITAMIN [Concomitant]
     Active Substance: VITAMINS
  12. WARFARIN 2.5MG + 5MG [Concomitant]
  13. PHENAZOPYRIDINE 200MG [Concomitant]
     Active Substance: PHENAZOPYRIDINE
  14. ABIRATERONE. [Suspect]
     Active Substance: ABIRATERONE ACETATE
     Indication: PROSTATE CANCER
     Route: 048
     Dates: start: 20200922, end: 20210916
  15. MAGNESIUM OXIDE 400MG [Concomitant]
     Active Substance: MAGNESIUM OXIDE
  16. TAMSULOSIN 0.4MG [Concomitant]
     Active Substance: TAMSULOSIN
  17. LISINOPRIL. [Concomitant]
     Active Substance: LISINOPRIL
  18. METOPROLOL SUCCINATE 25MG [Concomitant]
     Active Substance: METOPROLOL SUCCINATE
  19. ROSUVASTATIN 5MG [Concomitant]
     Active Substance: ROSUVASTATIN
  20. SENNOSIDES?DOCUSATE 8.6?50MG [Concomitant]

REACTIONS (1)
  - Death [None]

NARRATIVE: CASE EVENT DATE: 20210916
